FAERS Safety Report 9547611 (Version 1)
Quarter: 2013Q2

REPORT INFORMATION
  Report Type: Spontaneous
  Country: US (occurrence: None)
  Receive Date: 20130606
  Receipt Date: 20130606
  Transmission Date: 20140414
  Serious: No
  Sender: FDA-Public Use
  Company Number: 163-POMAL-13051280

PATIENT
  Age: 68 Year
  Sex: Male
  Weight: 84 kg

DRUGS (2)
  1. POMALYST (POMALIDOMIDE) (2 MILLIGRAM, CAPSULES) [Suspect]
     Indication: PLASMA CELL MYELOMA
     Dosage: 2 MG,  21 IN 21 D,  PO
     Route: 048
     Dates: start: 201304
  2. LYRICA (PREGABALIN) [Concomitant]

REACTIONS (1)
  - Plasma cell myeloma [None]
